FAERS Safety Report 19959406 (Version 1)
Quarter: 2021Q4

REPORT INFORMATION
  Report Type: Spontaneous
  Country: US (occurrence: US)
  Receive Date: 20211015
  Receipt Date: 20211015
  Transmission Date: 20220303
  Serious: Yes (Life-Threatening)
  Sender: FDA-Public Use
  Company Number: None

PATIENT
  Age: 38 Year
  Sex: Female
  Weight: 72 kg

DRUGS (6)
  1. DULOXETINE [Suspect]
     Active Substance: DULOXETINE
     Indication: Depression
     Dates: start: 20140301, end: 20200101
  2. DULOXETINE [Suspect]
     Active Substance: DULOXETINE
     Indication: Pain
  3. ASPIRIN [Concomitant]
     Active Substance: ASPIRIN
  4. LOSARTAN [Concomitant]
     Active Substance: LOSARTAN
  5. B12 COMPLEX [Concomitant]
  6. VITAMIN C [Concomitant]
     Active Substance: ASCORBIC ACID

REACTIONS (1)
  - Drug withdrawal syndrome [None]

NARRATIVE: CASE EVENT DATE: 20200101
